FAERS Safety Report 6704602-9 (Version None)
Quarter: 2010Q2

REPORT INFORMATION
  Report Type: 
  Country: None (occurrence: None)
  Receive Date: 20100430
  Receipt Date: 20100427
  Transmission Date: 20101027
  Serious: Yes (Other)
  Sender: FDA-Public Use
  Company Number: AU-ABBOTT-10P-008-0640999-00

PATIENT

DRUGS (1)
  1. HUMIRA [Suspect]
     Indication: DRUG USE FOR UNKNOWN INDICATION

REACTIONS (2)
  - PYOGENIC GRANULOMA [None]
  - SYSTEMIC LUPUS ERYTHEMATOSUS [None]
